FAERS Safety Report 5629375-2 (Version None)
Quarter: 2008Q1

REPORT INFORMATION
  Report Type: 
  Country: None (occurrence: None)
  Receive Date: 20080213
  Receipt Date: 20080213
  Transmission Date: 20080703
  Serious: Yes (Life-Threatening, Hospitalization)
  Sender: FDA-Public Use
  Company Number: None

PATIENT
  Age: 59 Year
  Sex: Male
  Weight: 113.3993 kg

DRUGS (1)
  1. CLOPIDOGREL BISULFATE [Suspect]
     Indication: CARDIAC DISORDER
     Dosage: 75 MG. ONE A DAY MOUTH
     Route: 048
     Dates: start: 20070401, end: 20070901

REACTIONS (2)
  - PHARMACEUTICAL PRODUCT COMPLAINT [None]
  - VASCULAR BYPASS DYSFUNCTION [None]
